FAERS Safety Report 4287373-8 (Version None)
Quarter: 2004Q1

REPORT INFORMATION
  Report Type: 
  Country: None (occurrence: None)
  Receive Date: 20040205
  Receipt Date: 20040120
  Transmission Date: 20041129
  Serious: Yes (Hospitalization)
  Sender: FDA-Public Use
  Company Number: 191034

PATIENT
  Sex: Female
  Weight: 56.6996 kg

DRUGS (5)
  1. AVONEX [Suspect]
     Indication: MULTIPLE SCLEROSIS
     Dosage: 30 MCG QW IM
     Dates: start: 20010101, end: 20020101
  2. SYNTHROID [Concomitant]
  3. XANAX [Concomitant]
  4. MIDRIN [Concomitant]
  5. DARVOCET-N 100 [Concomitant]

REACTIONS (5)
  - ANAEMIA [None]
  - CONVULSION [None]
  - INFLUENZA LIKE ILLNESS [None]
  - OVARIAN CYST [None]
  - WEIGHT DECREASED [None]
